FAERS Safety Report 21713930 (Version 1)
Quarter: 2022Q4

REPORT INFORMATION
  Report Type: Spontaneous
  Country: US (occurrence: None)
  Receive Date: 20221209
  Receipt Date: 20221209
  Transmission Date: 20230113
  Serious: Yes (Hospitalization)
  Sender: FDA-Public Use
  Company Number: None

PATIENT
  Age: 41 Year
  Sex: Female
  Weight: 91.6 kg

DRUGS (9)
  1. CYCLOPHOSPHAMIDE [Suspect]
     Active Substance: CYCLOPHOSPHAMIDE
     Dates: end: 20221120
  2. CYTARABINE [Suspect]
     Active Substance: CYTARABINE
     Dates: end: 20221117
  3. DEXAMETHASONE [Suspect]
     Active Substance: DEXAMETHASONE
     Dates: end: 20221201
  4. DOXORUBICIN HYDROCHLORIDE [Suspect]
     Active Substance: DOXORUBICIN HYDROCHLORIDE
     Dates: end: 20221121
  5. MESNA [Suspect]
     Active Substance: MESNA
     Dates: end: 20221120
  6. METHOTREXATE [Suspect]
     Active Substance: METHOTREXATE
     Dates: end: 20221123
  7. PONATINIB [Suspect]
     Active Substance: PONATINIB
     Dates: end: 20221201
  8. PREDNISONE [Suspect]
     Active Substance: PREDNISONE
     Dates: end: 20220804
  9. VINCRISTINE SULFATE [Suspect]
     Active Substance: VINCRISTINE SULFATE
     Dates: end: 20221128

REACTIONS (7)
  - Nausea [None]
  - Vomiting [None]
  - Myalgia [None]
  - Diarrhoea [None]
  - Tachycardia [None]
  - Product use issue [None]
  - Hypophagia [None]

NARRATIVE: CASE EVENT DATE: 20221202
